FAERS Safety Report 17433912 (Version 1)
Quarter: 2020Q1

REPORT INFORMATION
  Report Type: Spontaneous
  Country: GB (occurrence: GB)
  Receive Date: 20200219
  Receipt Date: 20200219
  Transmission Date: 20200409
  Serious: Yes (Other)
  Sender: FDA-Public Use
  Company Number: GB-TEVA-2020-GB-1187870

PATIENT
  Age: 78 Year
  Sex: Male
  Weight: 75.1 kg

DRUGS (9)
  1. IRBESARTAN HYDROCHLORIDE [Concomitant]
     Active Substance: IRBESARTAN
  2. FOLIC ACID. [Concomitant]
     Active Substance: FOLIC ACID
  3. CLOMIPRAMINE [Suspect]
     Active Substance: CLOMIPRAMINE
     Indication: DEPRESSION
     Dosage: 10 MG
     Route: 048
     Dates: start: 20200123
  4. MIRTAZAPINE. [Concomitant]
     Active Substance: MIRTAZAPINE
     Dosage: DISCONTINUED ABOUT 2 WEEKS AGO
     Dates: end: 202001
  5. VENLAFAXINE [Concomitant]
     Active Substance: VENLAFAXINE HYDROCHLORIDE
     Dosage: DISCONTINUED ABOUT 2 WEEKS AGO
     Dates: end: 202001
  6. OLANZAPINE. [Concomitant]
     Active Substance: OLANZAPINE
  7. AMLODIPINE [Suspect]
     Active Substance: AMLODIPINE BESYLATE
     Indication: ESSENTIAL HYPERTENSION
     Dosage: 5-10MG
     Route: 048
     Dates: start: 20200124, end: 20200128
  8. TAMSULOSIN HYDROCHLORIDE. [Concomitant]
     Active Substance: TAMSULOSIN HYDROCHLORIDE
  9. LANSOPRAZOLE. [Concomitant]
     Active Substance: LANSOPRAZOLE

REACTIONS (3)
  - Erythema multiforme [Recovering/Resolving]
  - Dermatitis allergic [Recovering/Resolving]
  - Pruritus [Recovering/Resolving]

NARRATIVE: CASE EVENT DATE: 20200124
